FAERS Safety Report 8005179-0 (Version None)
Quarter: 2011Q4

REPORT INFORMATION
  Report Type: 
  Country: None (occurrence: None)
  Receive Date: 20111223
  Receipt Date: 20111216
  Transmission Date: 20120403
  Serious: Yes (Other)
  Sender: FDA-Public Use
  Company Number: PHHY2011AU110694

PATIENT
  Age: 7 Year
  Sex: Male

DRUGS (4)
  1. PAMIDRONATE DISODIUM [Suspect]
     Indication: OSTEOPOROSIS
     Dosage: 30 MG/M2, Q2MO
     Route: 042
  2. PAMIDRONATE DISODIUM [Suspect]
     Dosage: 30 MG/M2, QMO
     Route: 042
  3. CALCIUM [Concomitant]
  4. CALCITRIOL [Concomitant]
     Dosage: UNK

REACTIONS (1)
  - NEPHROCALCINOSIS [None]
